FAERS Safety Report 7083706-8 (Version None)
Quarter: 2010Q4

REPORT INFORMATION
  Report Type: 
  Country: None (occurrence: None)
  Receive Date: 20101103
  Receipt Date: 20101103
  Transmission Date: 20110411
  Serious: Yes (Life-Threatening, Hospitalization)
  Sender: FDA-Public Use
  Company Number: None

PATIENT
  Sex: Female
  Weight: 45.3597 kg

DRUGS (1)
  1. FENTANYL CITRATE [Suspect]
     Indication: RENAL COLIC
     Route: 062

REACTIONS (3)
  - AMNESIA [None]
  - CARDIO-RESPIRATORY ARREST [None]
  - OVERDOSE [None]
